FAERS Safety Report 9254911 (Version 1)
Quarter: 2013Q2

REPORT INFORMATION
  Report Type: Spontaneous
  Country: GB (occurrence: GB)
  Receive Date: 20130425
  Receipt Date: 20130425
  Transmission Date: 20140414
  Serious: Yes (Hospitalization)
  Sender: FDA-Public Use
  Company Number: PHHY2013GB033192

PATIENT
  Age: 50 Year
  Sex: Female

DRUGS (5)
  1. DICLOFENAC [Suspect]
     Indication: PAIN
     Route: 048
     Dates: start: 20130326
  2. ESCITALOPRAM [Concomitant]
     Dosage: UNK
  3. SALBUTAMOL [Concomitant]
  4. SERETIDE [Concomitant]
  5. CO-CODAMOL [Concomitant]

REACTIONS (6)
  - Oral discomfort [Recovered/Resolved]
  - Glossodynia [Recovered/Resolved]
  - Choking sensation [Recovered/Resolved]
  - Anaphylactic reaction [Recovered/Resolved]
  - Pain of skin [Recovered/Resolved]
  - Local swelling [Recovered/Resolved]
